FAERS Safety Report 8994972 (Version 1)
Quarter: 2013Q1

REPORT INFORMATION
  Report Type: Spontaneous
  Country: US (occurrence: US)
  Receive Date: 20130102
  Receipt Date: 20130102
  Transmission Date: 20140127
  Serious: No
  Sender: FDA-Public Use
  Company Number: US-AMGEN-USASP2012076594

PATIENT
  Age: 62 Year
  Sex: Female
  Weight: 87.98 kg

DRUGS (7)
  1. ENBREL [Suspect]
     Indication: RHEUMATOID ARTHRITIS
     Dosage: 50 MG, QWK
     Route: 058
     Dates: start: 20121023
  2. MTX                                /00113801/ [Concomitant]
     Dosage: 20 MG, WEEKLY
  3. PREDNISONE [Concomitant]
     Dosage: 5 MG, QD
  4. CYMBALTA [Concomitant]
     Dosage: 60 MG, QD
  5. ZANAFLEX [Concomitant]
     Dosage: 4 MG, BEDTIME
  6. ADVIL                              /00044201/ [Concomitant]
     Dosage: UNK
  7. VICODIN [Concomitant]
     Dosage: UNK

REACTIONS (2)
  - Sciatica [Not Recovered/Not Resolved]
  - Injection site pain [Not Recovered/Not Resolved]
